FAERS Safety Report 7515428-0 (Version None)
Quarter: 2011Q2

REPORT INFORMATION
  Report Type: 
  Country: None (occurrence: None)
  Receive Date: 20110601
  Receipt Date: 20110525
  Transmission Date: 20111010
  Serious: Yes (Life-Threatening)
  Sender: FDA-Public Use
  Company Number: IN-ROXANE LABORATORIES, INC.-2011-RO-00728RO

PATIENT
  Age: 14 Year
  Sex: Female

DRUGS (3)
  1. BUSULFAN [Suspect]
     Indication: BONE MARROW CONDITIONING REGIMEN
  2. CYCLOPHOSPHAMIDE [Suspect]
     Indication: BONE MARROW CONDITIONING REGIMEN
  3. ANTI-THYMOCYTE GLOBULIN NOS [Suspect]
     Indication: BONE MARROW CONDITIONING REGIMEN

REACTIONS (1)
  - VENOOCCLUSIVE LIVER DISEASE [None]
